FAERS Safety Report 21800818 (Version 1)
Quarter: 2022Q4

REPORT INFORMATION
  Report Type: Spontaneous
  Country: US (occurrence: None)
  Receive Date: 20221229
  Receipt Date: 20221229
  Transmission Date: 20230113
  Serious: Yes (Other)
  Sender: FDA-Public Use
  Company Number: None

PATIENT
  Age: 72 Year
  Sex: Male
  Weight: 93.78 kg

DRUGS (16)
  1. REVLIMID [Suspect]
     Active Substance: LENALIDOMIDE
     Indication: Plasma cell myeloma
     Dosage: OTHER FREQUENCY : DAYS 1-21, OFF 7;?
     Route: 048
  2. ALENDRONATE [Concomitant]
     Active Substance: ALENDRONATE SODIUM
  3. AMLODIPINE [Concomitant]
     Active Substance: AMLODIPINE BESYLATE
  4. ASPIRIN [Concomitant]
     Active Substance: ASPIRIN
  5. BUMETANIDE [Concomitant]
     Active Substance: BUMETANIDE
  6. CARVEDILOL [Concomitant]
     Active Substance: CARVEDILOL
  7. ELIQUIS [Concomitant]
     Active Substance: APIXABAN
  8. FINASTERIDE [Concomitant]
     Active Substance: FINASTERIDE
  9. HYDRALAZINE [Concomitant]
     Active Substance: HYDRALAZINE HYDROCHLORIDE
  10. LOSARTAN [Concomitant]
     Active Substance: LOSARTAN
  11. LYRICA [Concomitant]
     Active Substance: PREGABALIN
  12. PREDNISONE [Concomitant]
     Active Substance: PREDNISONE
  13. SERTRALINE [Concomitant]
     Active Substance: SERTRALINE HYDROCHLORIDE
  14. MYCOPHENOLIC ACID [Concomitant]
     Active Substance: MYCOPHENOLIC ACID
  15. SIROLIMUS [Concomitant]
     Active Substance: SIROLIMUS
  16. TRAMADOL [Concomitant]
     Active Substance: TRAMADOL

REACTIONS (1)
  - Neutropenia [None]

NARRATIVE: CASE EVENT DATE: 20221212
